FAERS Safety Report 5652223-1 (Version None)
Quarter: 2008Q1

REPORT INFORMATION
  Report Type: 
  Country: None (occurrence: None)
  Receive Date: 20080304
  Receipt Date: 20080226
  Transmission Date: 20080703
  Serious: Yes (Hospitalization, Other)
  Sender: FDA-Public Use
  Company Number: 2008SP003516

PATIENT
  Age: 25 Year
  Sex: Male

DRUGS (2)
  1. PEGINTERON (PEGINTERFERON ALFA-2B) (PEGINTERFERON ALFA-2B) [Suspect]
     Indication: HEPATITIS C
     Dosage: 100 MCG QW SC ; 100 MCG QW
     Route: 058
     Dates: start: 20080216
  2. REBETOL [Suspect]
     Indication: HEPATITIS C
     Dosage: 1000 MG QD PO ; 1000 MG QD
     Route: 048
     Dates: start: 20080216

REACTIONS (2)
  - DIABETIC KETOACIDOSIS [None]
  - TYPE 1 DIABETES MELLITUS [None]
